FAERS Safety Report 4929599-3 (Version None)
Quarter: 2006Q1

REPORT INFORMATION
  Report Type: 
  Country: None (occurrence: None)
  Receive Date: 20060224
  Receipt Date: 20060211
  Transmission Date: 20060701
  Serious: Yes (Death, Other)
  Sender: FDA-Public Use
  Company Number: 2005090304

PATIENT
  Age: 44 Year
  Sex: Female
  Weight: 61.2356 kg

DRUGS (6)
  1. FELDENE [Suspect]
     Indication: ARTHRITIS
     Dosage: 1 IN 1 D
     Dates: start: 20050422, end: 20050601
  2. CELEBREX [Suspect]
     Indication: ARTHRITIS
     Dosage: 400 MG (200 MG, 2 IN 1 D)
     Dates: end: 20050101
  3. ALL OTHER THERAPEUTIC PRODUCTS (ALL OTHER THERAPEUTIC PRODUCTS) [Suspect]
     Indication: ILL-DEFINED DISORDER
     Dosage: EPIDURAL
     Route: 008
     Dates: end: 20050101
  4. EFFEXOR [Concomitant]
  5. TRAZODONE [Concomitant]
  6. PREMARIN [Concomitant]

REACTIONS (11)
  - ARTHRALGIA [None]
  - COMPLETED SUICIDE [None]
  - DRUG INEFFECTIVE [None]
  - FEELING ABNORMAL [None]
  - HEADACHE [None]
  - HYPERSENSITIVITY [None]
  - INTERVERTEBRAL DISC DEGENERATION [None]
  - OVERDOSE [None]
  - PAIN IN EXTREMITY [None]
  - PERIPHERAL ARTERIAL OCCLUSIVE DISEASE [None]
  - SHOULDER PAIN [None]
